FAERS Safety Report 24940705 (Version 1)
Quarter: 2025Q1

REPORT INFORMATION
  Report Type: Report from Study
  Country: ZA (occurrence: ZA)
  Receive Date: 20250207
  Receipt Date: 20250207
  Transmission Date: 20250408
  Serious: Yes (Other)
  Sender: TAKEDA
  Company Number: ZA-TAKEDA-2022TUS037413

PATIENT
  Sex: Male

DRUGS (1)
  1. VEDOLIZUMAB [Suspect]
     Active Substance: VEDOLIZUMAB
     Indication: Crohn^s disease
     Dosage: 300 MILLIGRAM, Q4WEEKS
     Dates: start: 20210611

REACTIONS (5)
  - Crohn^s disease [Unknown]
  - Off label use [Unknown]
  - Herpes zoster [Not Recovered/Not Resolved]
  - Drug ineffective [Unknown]
  - Product use issue [Recovered/Resolved]
